FAERS Safety Report 8278601-2 (Version None)
Quarter: 2012Q2

REPORT INFORMATION
  Report Type: 
  Country: None (occurrence: None)
  Receive Date: 20120412
  Receipt Date: 20120404
  Transmission Date: 20120825
  Serious: Yes (Other)
  Sender: FDA-Public Use
  Company Number: US-BAYER-2012-033529

PATIENT
  Age: 63 Year
  Sex: Female
  Weight: 84 kg

DRUGS (4)
  1. VITAMIN E [Concomitant]
  2. MULTI-VITAMIN [Concomitant]
  3. VITAMIN D [Concomitant]
  4. ASPIRIN [Suspect]
     Indication: ANALGESIC THERAPY
     Dosage: 1 DF, PRN
     Route: 048
     Dates: start: 20110701

REACTIONS (3)
  - BURN OESOPHAGEAL [None]
  - COUGH [None]
  - GLOSSODYNIA [None]
